FAERS Safety Report 8428906-7 (Version None)
Quarter: 2012Q2

REPORT INFORMATION
  Report Type: 
  Country: None (occurrence: None)
  Receive Date: 20120612
  Receipt Date: 20120531
  Transmission Date: 20120825
  Serious: Yes (Other)
  Sender: FDA-Public Use
  Company Number: JP-VERTEX PHARMACEUTICALS INC.-AE-2012-008464

PATIENT
  Age: 58 Year
  Sex: Male

DRUGS (8)
  1. PEG-INTRON [Concomitant]
     Indication: HEPATITIS C
     Route: 058
     Dates: start: 20120216
  2. REBETOL [Concomitant]
     Route: 048
     Dates: start: 20120511
  3. REBETOL [Concomitant]
     Indication: HEPATITIS C
     Route: 048
     Dates: start: 20120216, end: 20120307
  4. TELAVIC (TELAPREVIR) [Suspect]
     Route: 048
     Dates: start: 20120315, end: 20120509
  5. TELAVIC (TELAPREVIR) [Suspect]
     Indication: HEPATITIS C
     Route: 048
     Dates: start: 20120216, end: 20120222
  6. TELAVIC (TELAPREVIR) [Suspect]
     Route: 048
     Dates: start: 20120223, end: 20120314
  7. REBETOL [Concomitant]
     Route: 048
     Dates: start: 20120308, end: 20120322
  8. REBETOL [Concomitant]
     Route: 048
     Dates: start: 20120323, end: 20120510

REACTIONS (2)
  - HAEMOGLOBIN DECREASED [None]
  - ECZEMA [None]
